FAERS Safety Report 7974096-4 (Version None)
Quarter: 2011Q4

REPORT INFORMATION
  Report Type: 
  Country: None (occurrence: None)
  Receive Date: 20111213
  Receipt Date: 20111202
  Transmission Date: 20120403
  Serious: Yes (Other)
  Sender: FDA-Public Use
  Company Number: US-MYLANLABS-2011S1024905

PATIENT
  Age: 8 Month
  Sex: Male

DRUGS (5)
  1. TOPAMAX [Concomitant]
     Indication: CONVULSION
  2. ALBUTEROL SULFATE [Suspect]
     Indication: WHEEZING
     Dosage: PRN
     Route: 055
     Dates: start: 20111123
  3. VIGABATRIN [Concomitant]
     Indication: CONVULSION
  4. KEPPRA [Concomitant]
     Indication: CONVULSION
  5. CLOBAZAM [Concomitant]
     Indication: CONVULSION

REACTIONS (1)
  - HYPOGLYCAEMIA [None]
